FAERS Safety Report 17212525 (Version 1)
Quarter: 2019Q4

REPORT INFORMATION
  Report Type: Spontaneous
  Country: US (occurrence: US)
  Receive Date: 20191230
  Receipt Date: 20191230
  Transmission Date: 20200122
  Serious: Yes (Hospitalization)
  Sender: FDA-Public Use
  Company Number: US-TEVA-2019-US-1160095

PATIENT
  Age: 33 Year
  Sex: Female

DRUGS (4)
  1. COLCHICINE. [Suspect]
     Active Substance: COLCHICINE
     Indication: PERICARDITIS
     Dosage: .6 MILLIGRAM DAILY; (INITIAL DOSAGE NOT STATED; LATER STARTED RECEIVING 0.6MG/DAY)
     Route: 065
  2. IBUPROFEN. [Suspect]
     Active Substance: IBUPROFEN
     Indication: PERICARDITIS
     Route: 065
  3. HYDROMORPHONE [Suspect]
     Active Substance: HYDROMORPHONE
     Indication: PERICARDITIS
     Dosage: 80 MILLIGRAM DAILY;
     Route: 065
  4. IMMUNOGLOBULIN (IMMUNOGLOBULIN NOS) [Suspect]
     Active Substance: IMMUNE GLOBULIN NOS
     Indication: PERICARDITIS
     Route: 065

REACTIONS (1)
  - Treatment failure [Unknown]
